FAERS Safety Report 22212845 (Version 3)
Quarter: 2023Q2

REPORT INFORMATION
  Report Type: Spontaneous
  Country: BG (occurrence: BG)
  Receive Date: 20230414
  Receipt Date: 20230626
  Transmission Date: 20230722
  Serious: Yes (Death, Life-Threatening, Hospitalization, Other)
  Sender: FDA-Public Use
  Company Number: BG-TEVA-2023-BG-2871691

PATIENT
  Age: 53 Year
  Sex: Female

DRUGS (2)
  1. METFORMIN [Suspect]
     Active Substance: METFORMIN HYDROCHLORIDE
     Indication: Type 2 diabetes mellitus
     Dosage: 1000 MILLIGRAM, Q8H (3000 MILLIGRAM DAILY)
     Route: 048
  2. GABAPENTIN [Concomitant]
     Active Substance: GABAPENTIN
     Indication: Hypertension
     Dosage: UNK
     Route: 065

REACTIONS (13)
  - Toxicity to various agents [Fatal]
  - Sinus bradycardia [Fatal]
  - Acute kidney injury [Fatal]
  - Lactic acidosis [Fatal]
  - Circulatory collapse [Unknown]
  - Normochromic normocytic anaemia [Unknown]
  - Metabolic acidosis [Unknown]
  - Renal impairment [Unknown]
  - Hyperkalaemia [Unknown]
  - Anuria [Unknown]
  - Vomiting [Unknown]
  - Hypotension [Unknown]
  - Anaemia [Unknown]
